FAERS Safety Report 7415793-9 (Version None)
Quarter: 2011Q2

REPORT INFORMATION
  Report Type: 
  Country: None (occurrence: None)
  Receive Date: 20110406
  Receipt Date: 20110330
  Transmission Date: 20111010
  Serious: Yes (Hospitalization)
  Sender: FDA-Public Use
  Company Number: 2011SP014314

PATIENT
  Age: 97 Year
  Sex: Male

DRUGS (12)
  1. TIAPRIDAL (TIAPRIDE) [Suspect]
     Indication: AGITATION
     Dosage: 100 MG;BID;PO
     Route: 048
     Dates: end: 20100720
  2. SERESTA [Concomitant]
  3. MIRTAZAPINE [Suspect]
     Indication: AGITATION
     Dosage: PO
     Route: 048
     Dates: start: 20100714, end: 20100720
  4. XANAX [Suspect]
     Indication: AGITATION
     Dosage: 100 MG;QD;PO
     Route: 048
     Dates: start: 20100714, end: 20100720
  5. NOCTRAN (NOCTRAN 10) [Suspect]
     Indication: INSOMNIA
     Dosage: 10 MG;QD;PO
     Route: 048
     Dates: end: 20100714
  6. FUROSEMIDE [Suspect]
     Indication: PRODUCT USED FOR UNKNOWN INDICATION
     Dosage: 40 MG;QD;PO
     Route: 048
     Dates: end: 20100701
  7. STAGID (METFORMIN EMBONATE) [Suspect]
     Indication: TYPE 2 DIABETES MELLITUS
     Dosage: 700 MG;QD;PO
     Route: 048
     Dates: end: 20100720
  8. DUPHALAC [Concomitant]
  9. STILNOX [Concomitant]
  10. EQUANIL [Suspect]
     Indication: AGITATION
     Dosage: 250 MG;TID;PO
     Route: 048
     Dates: end: 20100714
  11. ROCEPHIN [Concomitant]
  12. DIAMICRON (GLICLAZIDE) [Suspect]
     Indication: TYPE 2 DIABETES MELLITUS
     Dosage: 30 MG;QD;PO
     Route: 048
     Dates: end: 20100720

REACTIONS (9)
  - ASPARTATE AMINOTRANSFERASE INCREASED [None]
  - HEPATITIS CHOLESTATIC [None]
  - GAMMA-GLUTAMYLTRANSFERASE INCREASED [None]
  - PYREXIA [None]
  - JAUNDICE [None]
  - BLOOD ALKALINE PHOSPHATASE INCREASED [None]
  - BLOOD BILIRUBIN INCREASED [None]
  - ALANINE AMINOTRANSFERASE INCREASED [None]
  - BILIRUBIN CONJUGATED INCREASED [None]
